FAERS Safety Report 5403590-5 (Version None)
Quarter: 2007Q3

REPORT INFORMATION
  Report Type: 
  Country: None (occurrence: None)
  Receive Date: 20070802
  Receipt Date: 20070725
  Transmission Date: 20080115
  Serious: Yes (Other)
  Sender: FDA-Public Use
  Company Number: PHBS2007BR09837

PATIENT
  Age: 26 Year
  Sex: Male
  Weight: 83 kg

DRUGS (5)
  1. LEPONEX [Suspect]
     Indication: HALLUCINATION
     Dosage: 300 MG/DAY
     Route: 048
     Dates: start: 20060101
  2. LEPONEX [Suspect]
     Dosage: 50 MG/DAY
     Route: 048
  3. LEPONEX [Suspect]
     Dosage: 225 MG/DAY
     Route: 048
  4. LEPONEX [Suspect]
     Dosage: 375 MG/D
     Route: 048
  5. CLONAZEPAM [Suspect]
     Indication: DELIRIUM
     Dosage: 2 MG, QD
     Route: 048

REACTIONS (9)
  - ANXIETY [None]
  - DRUG INTERACTION [None]
  - DRUG WITHDRAWAL SYNDROME [None]
  - HALLUCINATION, AUDITORY [None]
  - HICCUPS [None]
  - NASOPHARYNGITIS [None]
  - PSYCHOTIC DISORDER [None]
  - SALIVARY HYPERSECRETION [None]
  - SOMNOLENCE [None]
